FAERS Safety Report 15323069 (Version 1)
Quarter: 2018Q3

REPORT INFORMATION
  Report Type: Spontaneous
  Country: US (occurrence: US)
  Receive Date: 20180822
  Receipt Date: 20180822
  Transmission Date: 20181010
  Serious: Yes (Other)
  Sender: FDA-Public Use
  Company Number: None

PATIENT
  Age: 63 Year
  Sex: Male
  Weight: 75.78 kg

DRUGS (7)
  1. FLUNISOLIDE 0.025% 200D NASAL INH SPRAY [Concomitant]
  2. HYDROCHLOROTHIAZIDE 12.5MG CAP [Concomitant]
  3. NIFEDIPINE (EQV?CC) 60MG SA TAB [Concomitant]
  4. FISH OIL 1000MG [Concomitant]
  5. ASPIRIN 81MG CHEW TAB [Concomitant]
  6. RIBAVIRIN. [Suspect]
     Active Substance: RIBAVIRIN
  7. SOFOSBUVIR [Suspect]
     Active Substance: SOFOSBUVIR

REACTIONS (5)
  - Retroperitoneal lymphadenopathy [None]
  - Metastases to bone [None]
  - Hepatitis C [None]
  - Metastases to liver [None]
  - Sarcomatoid carcinoma [None]
